FAERS Safety Report 7809050-6 (Version None)
Quarter: 2011Q4

REPORT INFORMATION
  Report Type: 
  Country: None (occurrence: None)
  Receive Date: 20111012
  Receipt Date: 20110930
  Transmission Date: 20120403
  Serious: Yes (Hospitalization)
  Sender: FDA-Public Use
  Company Number: GB-SANOFI-AVENTIS-2011SA054959

PATIENT
  Age: 74 Year
  Sex: Female
  Weight: 53.9 kg

DRUGS (19)
  1. AMLODIPINE BESYLATE [Concomitant]
  2. LOPERAMIDE HCL [Concomitant]
  3. FLUOROURACIL [Suspect]
     Route: 042
     Dates: start: 20100818, end: 20110823
  4. DEXAMETHASONE [Concomitant]
  5. MAGNESIUM SULFATE [Concomitant]
  6. CALCIUM GLUCONATE [Concomitant]
  7. IRINOTECAN HCL [Concomitant]
     Dates: start: 20110913
  8. BEVACIZUMAB [Suspect]
     Route: 042
     Dates: start: 20110824
  9. ACETAMINOPHEN [Concomitant]
  10. OXALIPLATIN [Suspect]
     Route: 042
     Dates: start: 20100818, end: 20110809
  11. BEVACIZUMAB [Suspect]
     Route: 042
     Dates: start: 20100818, end: 20100823
  12. METOPROLOL TARTRATE [Concomitant]
  13. ZOFRAN [Concomitant]
  14. FLUOROURACIL [Suspect]
     Route: 042
  15. DIPHENHYDRAMINE HYDROCHLORIDE [Concomitant]
  16. LEUCOVORIN CALCIUM [Suspect]
     Route: 042
     Dates: start: 20100818, end: 20100823
  17. PALONOSETRON [Concomitant]
  18. SYNTHROID [Concomitant]
  19. FLUOROURACIL [Suspect]
     Route: 042
     Dates: start: 20110824

REACTIONS (2)
  - IDIOPATHIC THROMBOCYTOPENIC PURPURA [None]
  - THROMBOCYTOPENIA [None]
